FAERS Safety Report 23889581 (Version 1)
Quarter: 2024Q2

REPORT INFORMATION
  Report Type: Report from Study
  Country: BE (occurrence: None)
  Receive Date: 20240523
  Receipt Date: 20240523
  Transmission Date: 20240715
  Serious: Yes (Hospitalization)
  Sender: FDA-Public Use
  Company Number: 2024A113093

PATIENT
  Age: 65 Year
  Sex: Male

DRUGS (1)
  1. CILGAVIMAB\TIXAGEVIMAB [Suspect]
     Active Substance: CILGAVIMAB\TIXAGEVIMAB
     Indication: COVID-19 prophylaxis
     Dosage: 150/150 MG
     Route: 030

REACTIONS (2)
  - Breakthrough COVID-19 [Unknown]
  - Drug ineffective [Unknown]
